FAERS Safety Report 8642820 (Version 20)
Quarter: 2014Q1

REPORT INFORMATION
  Report Type: Spontaneous
  Country: US (occurrence: US)
  Receive Date: 20120629
  Receipt Date: 20140217
  Transmission Date: 20141002
  Serious: Yes (Hospitalization, Other)
  Sender: FDA-Public Use
  Company Number: PHEH2012US012852

PATIENT
  Sex: Female

DRUGS (24)
  1. ZOMETA [Suspect]
     Indication: LUNG NEOPLASM MALIGNANT
     Dosage: 3.3 MG, QMO
     Route: 042
     Dates: end: 20100602
  2. ZOMETA [Suspect]
     Dosage: 4 MG,
     Route: 042
  3. CARBOPLATIN [Suspect]
  4. METFORMIN [Concomitant]
  5. FLEXERIL [Concomitant]
  6. CYMBALTA [Concomitant]
  7. NASONEX [Concomitant]
  8. MOBIC [Concomitant]
  9. LOVAZA [Concomitant]
  10. LIBRAX [Concomitant]
  11. ALIMTA [Concomitant]
  12. AVASTIN [Concomitant]
  13. LIPITOR                                 /NET/ [Concomitant]
  14. ATIVAN [Concomitant]
     Route: 048
  15. BONIVA [Concomitant]
  16. PREMARIN [Concomitant]
  17. FOSAMAX [Concomitant]
  18. ZYRTEC [Concomitant]
  19. ROGAINE [Concomitant]
  20. VIOXX [Concomitant]
  21. CHEMOTHERAPEUTICS [Concomitant]
     Indication: LUNG NEOPLASM MALIGNANT
  22. PRILOSEC [Concomitant]
  23. TELMISARTAN [Concomitant]
  24. GLIPIZIDE [Concomitant]

REACTIONS (131)
  - Pyelonephritis [Unknown]
  - Escherichia bacteraemia [Unknown]
  - Urinary tract infection [Unknown]
  - Osteonecrosis of jaw [Unknown]
  - Injury [Unknown]
  - Disability [Unknown]
  - Pain [Unknown]
  - Anxiety [Unknown]
  - Anhedonia [Unknown]
  - Osteomyelitis [Unknown]
  - Jaw fracture [Unknown]
  - Sensory disturbance [Unknown]
  - Gingival pain [Unknown]
  - Inflammation [Unknown]
  - Oral disorder [Unknown]
  - Swelling [Unknown]
  - Gingival disorder [Unknown]
  - Cellulitis [Unknown]
  - Fistula [Unknown]
  - Toothache [Unknown]
  - Wound [Unknown]
  - Tooth infection [Unknown]
  - Temporomandibular joint syndrome [Unknown]
  - Purulent discharge [Unknown]
  - Excessive granulation tissue [Unknown]
  - Oedema [Unknown]
  - Infection [Unknown]
  - Bone deformity [Unknown]
  - Exposed bone in jaw [Unknown]
  - Gingival swelling [Unknown]
  - Sialoadenitis [Unknown]
  - Parotitis [Unknown]
  - Abscess jaw [Unknown]
  - Tooth abscess [Unknown]
  - Bone lesion [Unknown]
  - Sleep apnoea syndrome [Unknown]
  - Cystitis [Unknown]
  - Osteoporosis [Unknown]
  - Alpha haemolytic streptococcal infection [Unknown]
  - Haemophilus infection [Unknown]
  - Diabetes mellitus [Unknown]
  - Sinusitis [Unknown]
  - Metastases to central nervous system [Unknown]
  - Hypertension [Unknown]
  - Dyslipidaemia [Unknown]
  - Renal failure acute [Unknown]
  - Escherichia sepsis [Unknown]
  - Osteoarthritis [Unknown]
  - Haematuria [Unknown]
  - Spinal osteoarthritis [Unknown]
  - Metastases to spine [Unknown]
  - Abscess neck [Unknown]
  - Dyspnoea [Unknown]
  - Anaemia [Unknown]
  - Neuropathy peripheral [Unknown]
  - Sexual dysfunction [Unknown]
  - Vitamin D deficiency [Unknown]
  - Epistaxis [Recovered/Resolved]
  - Diverticulum intestinal [Unknown]
  - Syncope [Unknown]
  - Large intestine polyp [Unknown]
  - Renal cyst [Unknown]
  - Haemorrhoidal haemorrhage [Unknown]
  - Cerebrovascular disorder [Unknown]
  - Hyperlipidaemia [Unknown]
  - Ecchymosis [Unknown]
  - Intervertebral disc degeneration [Unknown]
  - Bursitis [Unknown]
  - Epicondylitis [Unknown]
  - Vertebral osteophyte [Unknown]
  - Spinal column stenosis [Unknown]
  - Vertebral foraminal stenosis [Unknown]
  - Synovial cyst [Unknown]
  - Joint effusion [Unknown]
  - Chondromalacia [Unknown]
  - Haematoma [Unknown]
  - Breast cyst [Recovered/Resolved]
  - Rectal haemorrhage [Unknown]
  - Pathological fracture [Unknown]
  - Mastication disorder [Unknown]
  - Hypercalcaemia [Unknown]
  - Hypoaesthesia oral [Unknown]
  - Fistula discharge [Unknown]
  - Deformity [Unknown]
  - Bronchial carcinoma [Unknown]
  - Metastases to bone [Unknown]
  - Dysuria [Unknown]
  - Tachycardia [Unknown]
  - Deafness [Unknown]
  - Mass [Unknown]
  - Coronary artery disease [Unknown]
  - Neck mass [Unknown]
  - Sinus disorder [Unknown]
  - Seborrhoeic keratosis [Unknown]
  - Furuncle [Unknown]
  - Fall [Unknown]
  - Soft tissue mass [Unknown]
  - Cerebral ischaemia [Unknown]
  - Sepsis [Unknown]
  - Lung adenocarcinoma stage IV [Unknown]
  - Osteoma [Unknown]
  - Lipoma [Unknown]
  - Phlebolith [Unknown]
  - Skin ulcer [Unknown]
  - Haemangioma [Unknown]
  - Chest pain [Unknown]
  - Pericardial effusion [Unknown]
  - Nephrolithiasis [Unknown]
  - Arthropathy [Unknown]
  - Contusion [Unknown]
  - Pericarditis [Unknown]
  - Atelectasis [Unknown]
  - Pleural effusion [Unknown]
  - Pulmonary mass [Unknown]
  - Incontinence [Unknown]
  - Alopecia [Unknown]
  - Rash [Unknown]
  - Asthenia [Unknown]
  - Hypoaesthesia [Unknown]
  - Pyrexia [Unknown]
  - Vomiting [Unknown]
  - Paraesthesia [Unknown]
  - Tinnitus [Unknown]
  - Dehydration [Unknown]
  - Nausea [Unknown]
  - Seasonal allergy [Unknown]
  - Dry skin [Unknown]
  - Skin sensitisation [Unknown]
  - Dysarthria [Unknown]
  - Gait disturbance [Recovered/Resolved]
  - Gastrooesophageal reflux disease [Unknown]
